FAERS Safety Report 8848656 (Version 1)
Quarter: 2012Q4

REPORT INFORMATION
  Report Type: Spontaneous
  Country: JP (occurrence: None)
  Receive Date: 20121015
  Receipt Date: 20121015
  Transmission Date: 20130627
  Serious: Yes (Other)
  Sender: FDA-Public Use
  Company Number: 2012P1060686

PATIENT
  Age: 8 Year
  Sex: Male

DRUGS (2)
  1. ISOTRETINOIN [Suspect]
     Indication: NEUROBLASTOMA
  2. CHEMOTHERAPY [Concomitant]
     Dosage: 160 MG/M^2;QD;

REACTIONS (3)
  - Arthralgia [None]
  - Bone lesion [None]
  - Bone marrow oedema [None]
